FAERS Safety Report 14303280 (Version 2)
Quarter: 2018Q1

REPORT INFORMATION
  Report Type: Report from Study
  Country: US (occurrence: US)
  Receive Date: 20171219
  Receipt Date: 20180315
  Transmission Date: 20180509
  Serious: Yes (Hospitalization, Other)
  Sender: FDA-Public Use
  Company Number: US-OTSUKA-2015_009762

PATIENT
  Age: 34 Year
  Sex: Male

DRUGS (3)
  1. PROZAC [Suspect]
     Active Substance: FLUOXETINE HYDROCHLORIDE
     Indication: BIPOLAR DISORDER
     Dosage: UNK
     Route: 065
  2. ARIPIPRAZOLE. [Suspect]
     Active Substance: ARIPIPRAZOLE
     Indication: PRODUCT USED FOR UNKNOWN INDICATION
     Dosage: 300 MG, QM
     Route: 030
  3. ABILIFY [Suspect]
     Active Substance: ARIPIPRAZOLE
     Indication: PRODUCT USED FOR UNKNOWN INDICATION
     Dosage: UNK
     Route: 048
     Dates: start: 201505

REACTIONS (8)
  - Drug ineffective [Unknown]
  - Aggression [Unknown]
  - Imprisonment [Unknown]
  - Back injury [Not Recovered/Not Resolved]
  - Treatment noncompliance [Unknown]
  - Antisocial behaviour [Unknown]
  - Incorrect dose administered [Unknown]
  - Suicide threat [Unknown]

NARRATIVE: CASE EVENT DATE: 20150624
